FAERS Safety Report 15227370 (Version 1)
Quarter: 2018Q3

REPORT INFORMATION
  Report Type: Spontaneous
  Country: JP (occurrence: JP)
  Receive Date: 20180801
  Receipt Date: 20180801
  Transmission Date: 20181010
  Serious: Yes (Hospitalization)
  Sender: FDA-Public Use
  Company Number: JP-SHENZHEN TECHDOW PHARMACEUTICAL CO. LTD-JP-2018TEC0000036

PATIENT
  Age: 28 Year
  Sex: Female

DRUGS (6)
  1. NORADRENALINE                      /00127501/ [Concomitant]
     Active Substance: NOREPINEPHRINE
     Indication: BLOOD PRESSURE DECREASED
     Dosage: UP TO 0.015 MCG/KG/MIN
  2. BISOPROLOL [Concomitant]
     Active Substance: BISOPROLOL
     Indication: HEART RATE INCREASED
     Dosage: 0.625 MG, QD
  3. FUROSEMIDE. [Concomitant]
     Active Substance: FUROSEMIDE
     Indication: PULMONARY CONGESTION
     Dosage: 5 MG/H
     Route: 042
  4. HEPARIN SODIUM INJECTION USP, PRESERVATIVE FREE [Suspect]
     Active Substance: HEPARIN SODIUM
     Indication: ANTICOAGULANT THERAPY
     Dosage: UNK
  5. LANDIOLOL [Concomitant]
     Active Substance: LANDIOLOL
     Indication: HEART RATE INCREASED
     Dosage: UP TO 80 MCG/KG/MIN
  6. BROMOCRIPTINE [Concomitant]
     Active Substance: BROMOCRIPTINE
     Indication: PERIPARTUM CARDIOMYOPATHY
     Dosage: 2.5 MG, BID

REACTIONS (1)
  - Uterine haemorrhage [Recovered/Resolved]
